FAERS Safety Report 8186295-X (Version None)
Quarter: 2012Q1

REPORT INFORMATION
  Report Type: 
  Country: None (occurrence: None)
  Receive Date: 20120301
  Receipt Date: 20120221
  Transmission Date: 20120608
  Serious: Yes (Hospitalization)
  Sender: FDA-Public Use
  Company Number: AUR-APL-2012-00901

PATIENT
  Age: 49 Year
  Sex: Female
  Weight: 68.7 kg

DRUGS (9)
  1. FLUOXETINE [Concomitant]
  2. SIMVASTATIN [Suspect]
     Indication: HYPERCHOLESTEROLAEMIA
     Dosage: (80 MG),ORAL ; 40 MG (40 MG,1 IN 1 D),ORAL
     Route: 048
     Dates: start: 20110801, end: 20120119
  3. QVAR [Concomitant]
  4. ACETAMINOPHEN W/ CODEINE [Concomitant]
  5. AMITRIPTYLINE HCL [Concomitant]
  6. METFORMIN HCL [Concomitant]
  7. ALBUTEROL SULFATE [Concomitant]
  8. VENTOLIN [Concomitant]
  9. LISINOPRIL [Concomitant]

REACTIONS (2)
  - RHABDOMYOLYSIS [None]
  - MALAISE [None]
